FAERS Safety Report 20391462 (Version 1)
Quarter: 2022Q1

REPORT INFORMATION
  Report Type: Spontaneous
  Country: US (occurrence: US)
  Receive Date: 20220128
  Receipt Date: 20220128
  Transmission Date: 20220423
  Serious: Yes (Hospitalization)
  Sender: FDA-Public Use
  Company Number: US-MYLANLABS-2022M1008375

PATIENT
  Age: 22 Year
  Sex: Female

DRUGS (6)
  1. TRETINOIN [Suspect]
     Active Substance: TRETINOIN
     Indication: Acute promyelocytic leukaemia
     Dosage: 22.5 MILLIGRAM/SQ. METER, BID
     Route: 048
  2. TRETINOIN [Suspect]
     Active Substance: TRETINOIN
     Indication: Acute promyelocytic leukaemia
     Dosage: SLURRY, NASOGASTRIC
     Route: 065
  3. GEMTUZUMAB OZOGAMICIN [Concomitant]
     Active Substance: GEMTUZUMAB OZOGAMICIN
     Indication: Acute promyelocytic leukaemia
     Dosage: 6 MILLIGRAM/SQ. METER, ONCE
     Route: 042
  4. ARSENIC TRIOXIDE [Concomitant]
     Active Substance: ARSENIC TRIOXIDE
     Indication: Acute promyelocytic leukaemia
     Dosage: 0.3 MILLIGRAM/KILOGRAM
     Route: 042
  5. HYDROXYUREA [Concomitant]
     Active Substance: HYDROXYUREA
     Indication: Product used for unknown indication
     Dosage: UNK
     Route: 065
  6. DEXMEDETOMIDINE [Concomitant]
     Active Substance: DEXMEDETOMIDINE
     Indication: Product used for unknown indication
     Dosage: UNK
     Route: 065

REACTIONS (2)
  - Differentiation syndrome [Unknown]
  - Off label use [Unknown]
